FAERS Safety Report 7626152 (Version 5)
Quarter: 2013Q4

REPORT INFORMATION
  Report Type: Spontaneous
  Country: US (occurrence: US)
  Receive Date: 20101013
  Receipt Date: 20131218
  Transmission Date: 20140711
  Serious: Yes (Other)
  Sender: FDA-Public Use
  Company Number: US-BAYER-201036579NA

PATIENT
  Age: 29 Year
  Sex: Female
  Weight: 117 kg

DRUGS (9)
  1. YASMIN [Suspect]
     Route: 048
     Dates: start: 2001, end: 20091001
  2. OCELLA [Suspect]
     Indication: PREMENSTRUAL SYNDROME
     Dosage: UNK
     Dates: start: 2001, end: 20091001
  3. OCELLA [Suspect]
     Indication: ACNE
  4. ORTHO TRI-CYCLEN LO [Concomitant]
  5. NEXIUM [Concomitant]
     Indication: GASTRITIS
     Dosage: UNK
     Dates: start: 200507
  6. NEXIUM [Concomitant]
     Indication: GASTROOESOPHAGEAL REFLUX DISEASE
  7. DESOGEN [DESOGESTREL,ETHINYLESTRADIOL] [Concomitant]
  8. PREVACID [Concomitant]
  9. VITAMINS [Concomitant]

REACTIONS (9)
  - Gallbladder disorder [None]
  - Biliary dyskinesia [None]
  - Abdominal pain [None]
  - Chest pain [None]
  - Vomiting [None]
  - Diarrhoea [None]
  - Nausea [None]
  - Abdominal distension [None]
  - Irritable bowel syndrome [None]
